FAERS Safety Report 13677951 (Version 1)
Quarter: 2017Q2

REPORT INFORMATION
  Report Type: Spontaneous
  Country: US (occurrence: US)
  Receive Date: 20170621
  Receipt Date: 20170621
  Transmission Date: 20170830
  Serious: No
  Sender: FDA-Public Use
  Company Number: None

PATIENT
  Age: 74 Year
  Sex: Female

DRUGS (2)
  1. IBRANCE [Suspect]
     Active Substance: PALBOCICLIB
     Indication: BREAST CANCER FEMALE
     Dosage: 125MG DAILY FOR 21 DAYS ON FOLLOWED BY 7 DAYS OFF BY MOUTH
     Route: 048
     Dates: start: 20170404
  2. IBRANCE [Suspect]
     Active Substance: PALBOCICLIB
     Indication: METASTASES TO BREAST
     Dosage: 125MG DAILY FOR 21 DAYS ON FOLLOWED BY 7 DAYS OFF BY MOUTH
     Route: 048
     Dates: start: 20170404

REACTIONS (2)
  - Joint swelling [None]
  - Fatigue [None]

NARRATIVE: CASE EVENT DATE: 20170520
